FAERS Safety Report 8417365-6 (Version None)
Quarter: 2012Q2

REPORT INFORMATION
  Report Type: 
  Country: None (occurrence: None)
  Receive Date: 20120606
  Receipt Date: 20120530
  Transmission Date: 20120825
  Serious: Yes (Death, Other)
  Sender: FDA-Public Use
  Company Number: DE-BAXTER-2012BAX006349

PATIENT
  Sex: Male
  Weight: 87 kg

DRUGS (5)
  1. SUPRANE [Suspect]
     Route: 065
     Dates: start: 20120510, end: 20120510
  2. SIMVASTATIN [Concomitant]
     Route: 048
     Dates: end: 20120510
  3. ROCURONIUM BROMIDE [Concomitant]
     Route: 042
     Dates: start: 20120510
  4. PROPOFOL [Concomitant]
     Route: 042
     Dates: start: 20120510
  5. FENTANYL [Concomitant]
     Route: 042
     Dates: start: 20120510

REACTIONS (4)
  - BLOOD CREATINE PHOSPHOKINASE INCREASED [None]
  - RENAL FAILURE [None]
  - MULTI-ORGAN FAILURE [None]
  - RHABDOMYOLYSIS [None]
